FAERS Safety Report 6286816-8 (Version None)
Quarter: 2009Q3

REPORT INFORMATION
  Report Type: 
  Country: None (occurrence: None)
  Receive Date: 20090728
  Receipt Date: 20090727
  Transmission Date: 20100115
  Serious: Yes (Other)
  Sender: FDA-Public Use
  Company Number: US-TEVA-203481USA

PATIENT
  Sex: Female
  Weight: 56.977 kg

DRUGS (2)
  1. RISPERIDONE TABLET 0.25MG,0.5MG,1MG,2MG,3MG,4MG [Suspect]
     Route: 048
     Dates: start: 20080819
  2. BUPROPION HCL [Suspect]

REACTIONS (5)
  - HALLUCINATION [None]
  - HOMICIDAL IDEATION [None]
  - PARANOIA [None]
  - PSYCHOTIC DISORDER [None]
  - SUICIDAL IDEATION [None]
